FAERS Safety Report 18473475 (Version 9)
Quarter: 2022Q3

REPORT INFORMATION
  Report Type: Spontaneous
  Country: US (occurrence: US)
  Receive Date: 20201106
  Receipt Date: 20220803
  Transmission Date: 20221027
  Serious: Yes (Death, Hospitalization, Other)
  Sender: FDA-Public Use
  Company Number: US-PFIZER INC-2020431546

PATIENT
  Age: 75 Year
  Sex: Female

DRUGS (1)
  1. XELJANZ XR [Suspect]
     Active Substance: TOFACITINIB CITRATE
     Dosage: 11 MG, DAILY
     Dates: end: 2020

REACTIONS (9)
  - Death [Fatal]
  - Lower limb fracture [Unknown]
  - Hepatitis [Unknown]
  - Pneumonia [Unknown]
  - Hip fracture [Unknown]
  - Liver abscess [Unknown]
  - Fall [Unknown]
  - Pain in extremity [Unknown]
  - Hypersensitivity [Unknown]

NARRATIVE: CASE EVENT DATE: 20200601
